FAERS Safety Report 10882233 (Version 2)
Quarter: 2015Q1

REPORT INFORMATION
  Report Type: Spontaneous
  Country: US (occurrence: US)
  Receive Date: 20150303
  Receipt Date: 20150330
  Transmission Date: 20150721
  Serious: No
  Sender: FDA-Public Use
  Company Number: US-ASTRAZENECA-2015SE17379

PATIENT
  Age: 64 Year
  Sex: Female
  Weight: 106.6 kg

DRUGS (2)
  1. SYMBICORT [Suspect]
     Active Substance: BUDESONIDE\FORMOTEROL FUMARATE DIHYDRATE
     Indication: ASTHMA
     Dosage: 160/4.5 UG, TWO PUFFS TWO TIMES A DAY
     Route: 055
     Dates: start: 20150122, end: 20150215
  2. SYMBICORT [Suspect]
     Active Substance: BUDESONIDE\FORMOTEROL FUMARATE DIHYDRATE
     Indication: COUGH
     Dosage: 160/4.5 UG, TWO PUFFS TWO TIMES A DAY
     Route: 055
     Dates: start: 20150122, end: 20150215

REACTIONS (7)
  - Dizziness [Unknown]
  - Muscle spasms [Recovering/Resolving]
  - Tremor [Recovering/Resolving]
  - Dyspnoea [Recovering/Resolving]
  - Headache [Unknown]
  - Nervousness [Recovering/Resolving]
  - Paraesthesia [Unknown]

NARRATIVE: CASE EVENT DATE: 20150214
